FAERS Safety Report 7596417-7 (Version None)
Quarter: 2011Q3

REPORT INFORMATION
  Report Type: 
  Country: None (occurrence: None)
  Receive Date: 20110707
  Receipt Date: 20110628
  Transmission Date: 20111222
  Serious: Yes (Other)
  Sender: FDA-Public Use
  Company Number: US-RB-029139-11

PATIENT
  Age: 55 Year
  Sex: Female

DRUGS (3)
  1. SUBOXONE [Suspect]
     Indication: PAIN MANAGEMENT
     Dosage: SIBLINGUAL FILM
     Route: 060
     Dates: start: 20100101
  2. SUBOXONE [Suspect]
     Indication: PAIN MANAGEMENT
     Route: 060
     Dates: start: 20100701, end: 20100101
  3. METFORMIN HCL [Concomitant]
     Indication: DIABETES MELLITUS
     Dosage: DOSING INFORMATION UNKNOWN
     Route: 065

REACTIONS (3)
  - CONSTIPATION [None]
  - PULMONARY FIBROSIS [None]
  - OFF LABEL USE [None]
